FAERS Safety Report 8523592-X (Version None)
Quarter: 2012Q3

REPORT INFORMATION
  Report Type: 
  Country: None (occurrence: None)
  Receive Date: 20120720
  Receipt Date: 20080502
  Transmission Date: 20120928
  Serious: Yes (Other)
  Sender: FDA-Public Use
  Company Number: CO-PFIZER INC-2012172298

PATIENT
  Age: 78 Year
  Sex: Female

DRUGS (7)
  1. OLMESARTAN MEDOXOMIL [Suspect]
     Dosage: UNK
  2. LIPITOR [Suspect]
     Dosage: 10 MG, EVERY 24 HOURS
  3. HYDROCHLOROTHIAZIDE [Concomitant]
     Dosage: 25 MG, EVERY 24 HOURS
  4. HYDROCHLOROTHIAZIDE [Concomitant]
     Dosage: 12.5 MG, 1X/DAY
  5. ACETYLSALICYLIC ACID [Concomitant]
     Dosage: 100 MG, EVERY 24 HOURS
  6. AMLODIPINE [Concomitant]
     Dosage: 5 MG, 2X/DAY
  7. METOPROLOL [Concomitant]
     Dosage: 50 MG, 2X/DAY

REACTIONS (3)
  - ANXIETY [None]
  - TOBACCO ABUSE [None]
  - HYPERTENSIVE EMERGENCY [None]
